FAERS Safety Report 6322081-0 (Version None)
Quarter: 2009Q3

REPORT INFORMATION
  Report Type: 
  Country: None (occurrence: None)
  Receive Date: 20090824
  Receipt Date: 20090813
  Transmission Date: 20100115
  Serious: Yes (Other)
  Sender: FDA-Public Use
  Company Number: US-JNJFOC-20090804404

PATIENT
  Sex: Female

DRUGS (1)
  1. DOXIL [Suspect]
     Indication: ENDOMETRIAL CANCER
     Route: 042

REACTIONS (4)
  - MUCOSAL INFLAMMATION [None]
  - OFF LABEL USE [None]
  - PALMAR-PLANTAR ERYTHRODYSAESTHESIA SYNDROME [None]
  - TOXIC EPIDERMAL NECROLYSIS [None]
